FAERS Safety Report 10089994 (Version 2)
Quarter: 2014Q2

REPORT INFORMATION
  Report Type: Spontaneous
  Country: US (occurrence: US)
  Receive Date: 20140421
  Receipt Date: 20140421
  Transmission Date: 20141212
  Serious: Yes (Hospitalization)
  Sender: FDA-Public Use
  Company Number: US-INCYTE CORPORATION-2014IN000420

PATIENT
  Age: 65 Year
  Sex: Female
  Weight: 63.49 kg

DRUGS (8)
  1. JAKAFI [Suspect]
     Indication: MYELOFIBROSIS
     Dosage: 5 MG, BID
     Route: 048
     Dates: start: 20131119
  2. METOPROLOL [Concomitant]
  3. COREG [Concomitant]
  4. NORVASC [Concomitant]
  5. STARLIX [Concomitant]
  6. URSODIOL [Concomitant]
  7. GABAPENTIN [Concomitant]
  8. FLUCONAZOLE [Concomitant]

REACTIONS (2)
  - Hospitalisation [Unknown]
  - Anaemia [Unknown]
